FAERS Safety Report 9921345 (Version 3)
Quarter: 2014Q1

REPORT INFORMATION
  Report Type: Report from Study
  Country: JP (occurrence: JP)
  Receive Date: 20140225
  Receipt Date: 20140326
  Transmission Date: 20141002
  Serious: Yes (Other)
  Sender: FDA-Public Use
  Company Number: PHHY2013JP154752

PATIENT
  Age: 32 Year
  Sex: Male
  Weight: 78 kg

DRUGS (4)
  1. FTY 720 [Suspect]
     Indication: MULTIPLE SCLEROSIS
     Dosage: 0.5 MG, QD
     Route: 048
     Dates: start: 20121127
  2. LENDORMIN [Concomitant]
     Indication: PROPHYLAXIS
     Route: 048
     Dates: start: 20121128
  3. MYSLEE [Concomitant]
     Indication: PROPHYLAXIS
     Route: 048
     Dates: start: 20120110, end: 20130220
  4. SELTOUCH [Concomitant]
     Indication: PROPHYLAXIS
     Dates: start: 20121220, end: 20130110

REACTIONS (1)
  - Acoustic neuroma [Not Recovered/Not Resolved]
